FAERS Safety Report 5515835-1 (Version None)
Quarter: 2007Q4

REPORT INFORMATION
  Report Type: 
  Country: None (occurrence: None)
  Receive Date: 20071114
  Receipt Date: 20071102
  Transmission Date: 20080405
  Serious: Yes (Death)
  Sender: FDA-Public Use
  Company Number: US-TYCO HEALTHCARE/MALLINCKRODT-T200701360

PATIENT

DRUGS (3)
  1. METHADONE HCL [Suspect]
     Indication: PAIN
     Dosage: 4 TABLETS AS NEEDED
     Route: 048
     Dates: start: 20010723
  2. OXYCONTIN [Concomitant]
  3. NEURONTIN [Concomitant]

REACTIONS (2)
  - DRUG DISPENSING ERROR [None]
  - THERAPEUTIC AGENT TOXICITY [None]
